FAERS Safety Report 5736658-4 (Version None)
Quarter: 2008Q2

REPORT INFORMATION
  Report Type: 
  Country: None (occurrence: None)
  Receive Date: 20080508
  Receipt Date: 20080423
  Transmission Date: 20081010
  Serious: Yes (Hospitalization)
  Sender: FDA-Public Use
  Company Number: DSA_31784_2008

PATIENT
  Age: 82 Year
  Sex: Male

DRUGS (3)
  1. ENALAPRIL MALEATE [Suspect]
     Indication: LEFT VENTRICULAR DYSFUNCTION
     Dosage: (5 MG BID ORAL)
     Route: 048
     Dates: start: 20040101, end: 20070219
  2. DIGOXIN [Concomitant]
  3. FLUINDIONE [Concomitant]

REACTIONS (6)
  - C-REACTIVE PROTEIN INCREASED [None]
  - HAEMATURIA [None]
  - NECROSIS [None]
  - PAIN [None]
  - RENAL FAILURE [None]
  - VASCULAR PURPURA [None]
